FAERS Safety Report 6371407-0 (Version None)
Quarter: 2009Q3

REPORT INFORMATION
  Report Type: 
  Country: None (occurrence: None)
  Receive Date: 20090923
  Receipt Date: 20071109
  Transmission Date: 20100115
  Serious: Yes (Other)
  Sender: FDA-Public Use
  Company Number: US-ASTRAZENECA-2007UW14893

PATIENT
  Age: 17205 Day
  Sex: Female

DRUGS (10)
  1. SEROQUEL [Suspect]
     Indication: INSOMNIA
     Route: 048
     Dates: start: 19990101
  2. SEROQUEL [Suspect]
     Dosage: 75 - 300 MG DAILY
     Route: 048
     Dates: start: 20060504
  3. ZYPREXA [Concomitant]
     Dates: start: 19970101, end: 19970101
  4. LIPITOR [Concomitant]
     Indication: BLOOD CHOLESTEROL INCREASED
     Dosage: STRENGTH - 10- 20 MG DAILY
     Dates: start: 20050609
  5. FLUOXETINE [Concomitant]
     Dates: start: 20050609
  6. VALTREX [Concomitant]
     Indication: HERPES VIRUS INFECTION
     Dates: start: 20060126
  7. SKELAXIN [Concomitant]
     Dates: start: 20060307
  8. PERCOCET [Concomitant]
     Indication: BACK PAIN
     Dates: start: 20060504
  9. ALBUTEROL [Concomitant]
     Indication: CHRONIC OBSTRUCTIVE PULMONARY DISEASE
     Dates: start: 20060504
  10. CARISOPRODOL [Concomitant]
     Dates: start: 20050509

REACTIONS (1)
  - PANCREATITIS ACUTE [None]
